FAERS Safety Report 6382460-2 (Version None)
Quarter: 2009Q3

REPORT INFORMATION
  Report Type: 
  Country: None (occurrence: None)
  Receive Date: 20090928
  Receipt Date: 20090928
  Transmission Date: 20100115
  Serious: Yes (Life-Threatening, Other)
  Sender: FDA-Public Use
  Company Number: None

PATIENT
  Age: 4 Year
  Sex: Female
  Weight: 22.6799 kg

DRUGS (1)
  1. SINGULAIR [Suspect]
     Indication: ASTHMA
     Dates: start: 20081210, end: 20090215

REACTIONS (24)
  - ABASIA [None]
  - ABDOMINAL PAIN UPPER [None]
  - ABNORMAL BEHAVIOUR [None]
  - ABNORMAL DREAMS [None]
  - AGGRESSION [None]
  - ANGER [None]
  - ANXIETY [None]
  - BACK PAIN [None]
  - CRYING [None]
  - DEPRESSED MOOD [None]
  - FATIGUE [None]
  - FEAR [None]
  - HALLUCINATION, VISUAL [None]
  - HEADACHE [None]
  - INITIAL INSOMNIA [None]
  - INJURY [None]
  - MIDDLE INSOMNIA [None]
  - NIGHT SWEATS [None]
  - PAIN IN EXTREMITY [None]
  - PARAESTHESIA [None]
  - SALIVARY HYPERSECRETION [None]
  - SCREAMING [None]
  - SUICIDAL IDEATION [None]
  - THINKING ABNORMAL [None]
